FAERS Safety Report 10222804 (Version 1)
Quarter: 2014Q2

REPORT INFORMATION
  Report Type: Spontaneous
  Country: US (occurrence: US)
  Receive Date: 20140606
  Receipt Date: 20140606
  Transmission Date: 20141212
  Serious: No
  Sender: FDA-Public Use
  Company Number: US-RB-068245-14

PATIENT
  Age: 0 Year
  Sex: Female
  Weight: 3.32 kg

DRUGS (4)
  1. BUPRENORPHINE GENERIC [Suspect]
     Indication: DRUG DEPENDENCE
     Route: 064
     Dates: start: 201312, end: 20140417
  2. BUPRENORPHINE GENERIC [Suspect]
     Route: 063
     Dates: start: 20140417
  3. NICOTINE [Suspect]
     Dosage: THE NEONATE^S MOTHER WAS SMOKING 20 CIGARETTES DAILY
     Route: 064
     Dates: start: 201307, end: 20140417
  4. NICOTINE [Suspect]
     Indication: NICOTINE DEPENDENCE
     Dosage: THE NEONATE^S MOTHER WAS SMOKING 20 CIGARETTES DAILY
     Route: 063
     Dates: start: 20140417

REACTIONS (3)
  - Foetal exposure during pregnancy [Recovered/Resolved]
  - Hospitalisation [Recovered/Resolved]
  - Exposure during breast feeding [Not Recovered/Not Resolved]
